FAERS Safety Report 16121470 (Version 1)
Quarter: 2019Q1

REPORT INFORMATION
  Report Type: Spontaneous
  Country: FR (occurrence: FR)
  Receive Date: 20190327
  Receipt Date: 20190327
  Transmission Date: 20190418
  Serious: Yes (Hospitalization)
  Sender: FDA-Public Use
  Company Number: FR-SA-2019SA076355

PATIENT
  Age: 93 Year
  Sex: Female
  Weight: 64.2 kg

DRUGS (12)
  1. IPRATROPIUM BROMIDE. [Concomitant]
     Active Substance: IPRATROPIUM BROMIDE
  2. CEFTRIAXONE. [Suspect]
     Active Substance: CEFTRIAXONE
     Indication: LUNG INFECTION
     Dosage: 1 G, QD
     Route: 041
     Dates: start: 20180501, end: 20180502
  3. FLUCONAZOLE. [Concomitant]
     Active Substance: FLUCONAZOLE
  4. METRONIDAZOLE. [Concomitant]
     Active Substance: METRONIDAZOLE
  5. KARDEGIC [Concomitant]
     Active Substance: ASPIRIN DL-LYSINE
  6. LOVENOX [Suspect]
     Active Substance: ENOXAPARIN SODIUM
     Indication: PROPHYLAXIS
     Dosage: 1 DF, QD
     Route: 058
     Dates: start: 20180429, end: 20180501
  7. FUROSEMIDE. [Concomitant]
     Active Substance: FUROSEMIDE
  8. SALBUTAMOL [Concomitant]
     Active Substance: ALBUTEROL
  9. TRIMEBUTINE [Concomitant]
     Active Substance: TRIMEBUTINE
  10. BISOCE [Concomitant]
     Active Substance: BISOPROLOL
  11. LACTULOSE. [Concomitant]
     Active Substance: LACTULOSE
  12. IRBESARTAN. [Concomitant]
     Active Substance: IRBESARTAN

REACTIONS (1)
  - Rash pustular [Recovered/Resolved]

NARRATIVE: CASE EVENT DATE: 20180502
